FAERS Safety Report 19181265 (Version 1)
Quarter: 2021Q2

REPORT INFORMATION
  Report Type: Spontaneous
  Country: US (occurrence: US)
  Receive Date: 20210426
  Receipt Date: 20210426
  Transmission Date: 20210717
  Serious: No
  Sender: FDA-Public Use
  Company Number: US-PFIZER INC-2021335905

PATIENT
  Sex: Female

DRUGS (1)
  1. GENOTROPIN [Suspect]
     Active Substance: SOMATROPIN
     Dosage: UNK

REACTIONS (5)
  - Exposure via skin contact [Unknown]
  - Abdominal pain [Unknown]
  - Nausea [Unknown]
  - Accidental exposure to product [Unknown]
  - Pyrexia [Unknown]

NARRATIVE: CASE EVENT DATE: 202103
